FAERS Safety Report 8168897-X (Version None)
Quarter: 2012Q1

REPORT INFORMATION
  Report Type: 
  Country: None (occurrence: None)
  Receive Date: 20120227
  Receipt Date: 20120216
  Transmission Date: 20120608
  Serious: No
  Sender: FDA-Public Use
  Company Number: US-B.I. PHARMACEUTICALS,INC./RIDGEFIELD-2012-BP-03101BP

PATIENT
  Sex: Male

DRUGS (22)
  1. AGGRENOX [Suspect]
     Route: 048
     Dates: start: 20120206, end: 20120212
  2. GABAPENTIN [Concomitant]
     Indication: RESTLESS LEGS SYNDROME
     Dosage: 300 MG
     Route: 048
  3. POTASSIUM CHLORIDE [Concomitant]
     Indication: SUPPLEMENTATION THERAPY
     Dosage: 750 MEQ
     Route: 048
  4. LASIX [Concomitant]
     Indication: OEDEMA PERIPHERAL
     Dosage: 20 MG
     Route: 048
  5. AGGRENOX [Suspect]
     Indication: TRANSIENT ISCHAEMIC ATTACK
     Route: 048
     Dates: start: 20111128, end: 20120204
  6. AGGRENOX [Suspect]
     Route: 048
     Dates: start: 20120213
  7. PLETAL [Concomitant]
     Indication: ANTICOAGULANT THERAPY
     Dosage: 200 MG
     Route: 048
  8. OMEPRAZOLE [Concomitant]
     Indication: GASTROOESOPHAGEAL REFLUX DISEASE
     Dosage: 40 MG
     Route: 048
  9. LUMIGAN [Concomitant]
     Indication: GLAUCOMA
  10. CEREFOLIN [Concomitant]
     Indication: SUPPLEMENTATION THERAPY
     Dosage: 5 MG
     Route: 048
  11. VITAMIN D [Concomitant]
     Indication: SUPPLEMENTATION THERAPY
     Dosage: 1000 U
     Route: 048
  12. ENABLEX [Concomitant]
     Indication: HYPERTONIC BLADDER
     Route: 048
  13. RYTHMOL [Concomitant]
     Indication: ARRHYTHMIA
     Route: 048
  14. BONIVA [Concomitant]
     Indication: OSTEOPOROSIS
     Route: 048
  15. AVODART [Concomitant]
     Indication: BENIGN PROSTATIC HYPERPLASIA
     Dosage: 0.5 MG
     Route: 048
  16. ASPIRIN [Concomitant]
     Indication: TRANSIENT ISCHAEMIC ATTACK
     Dosage: 325 MG
     Route: 048
     Dates: start: 19920101, end: 20120117
  17. VYTORIN [Concomitant]
     Indication: BLOOD CHOLESTEROL INCREASED
     Route: 048
  18. ACETAMINOPHEN [Concomitant]
     Indication: PAIN
     Route: 048
  19. GABAPENTIN [Concomitant]
     Indication: SCIATICA
  20. MIRAPEX [Concomitant]
     Indication: PARKINSON'S DISEASE
     Route: 048
  21. ALDACTONE [Concomitant]
     Indication: OEDEMA
     Route: 048
  22. MULTI-VITAMIN [Concomitant]
     Indication: SUPPLEMENTATION THERAPY
     Route: 048

REACTIONS (2)
  - PENILE HAEMORRHAGE [None]
  - SCROTAL HAEMATOCOELE [None]
